FAERS Safety Report 6283459-7 (Version None)
Quarter: 2009Q3

REPORT INFORMATION
  Report Type: 
  Country: None (occurrence: None)
  Receive Date: 20090724
  Receipt Date: 20070604
  Transmission Date: 20100115
  Serious: Yes (Other)
  Sender: FDA-Public Use
  Company Number: US-ASTRAZENECA-2006UW26220

PATIENT
  Age: 501 Month
  Sex: Male
  Weight: 85.9 kg

DRUGS (13)
  1. SEROQUEL [Suspect]
     Indication: SLEEP DISORDER
     Route: 048
     Dates: start: 20030201
  2. SEROQUEL [Suspect]
     Dosage: 100-200 MG
     Route: 048
     Dates: start: 20030911
  3. HALDOL [Concomitant]
     Dates: start: 20050509
  4. HALDOL [Concomitant]
     Dates: start: 20061101
  5. RISPERDAL [Concomitant]
     Dates: start: 20061017
  6. COGENTIN [Concomitant]
     Dates: start: 20050509
  7. COGENTIN [Concomitant]
     Dates: start: 20061118
  8. TRAZODONE [Concomitant]
     Dates: start: 20061101
  9. GEMFIBROZIL [Concomitant]
     Dates: start: 20060727
  10. ACTOS [Concomitant]
     Route: 048
     Dates: start: 20060727
  11. RANITIDINE [Concomitant]
     Route: 048
     Dates: start: 20060727
  12. DEMEROL [Concomitant]
     Dates: start: 20060727
  13. VISTARIL [Concomitant]
     Dates: start: 20050509

REACTIONS (3)
  - DIABETES MELLITUS [None]
  - DIABETIC NEUROPATHY [None]
  - TYPE 2 DIABETES MELLITUS [None]
